FAERS Safety Report 21093063 (Version 1)
Quarter: 2022Q3

REPORT INFORMATION
  Report Type: Other
  Country: None (occurrence: US)
  Receive Date: 20220718
  Receipt Date: 20220718
  Transmission Date: 20221026
  Serious: No
  Sender: FDA-Public Use
  Company Number: US-Ascent Pharmaceuticals, Inc.-2130962

PATIENT
  Age: 13 Year
  Sex: Male
  Weight: 102.06 kg

DRUGS (5)
  1. METHYLPHENIDATE HYDROCHLORIDE [Suspect]
     Active Substance: METHYLPHENIDATE HYDROCHLORIDE
     Indication: Attention deficit hyperactivity disorder
     Route: 065
  2. DEXMETHYLPHENIDATE HYDROCHLORIDE [Suspect]
     Active Substance: DEXMETHYLPHENIDATE HYDROCHLORIDE
  3. AZSTARYS [Suspect]
     Active Substance: DEXMETHYLPHENIDATE HYDROCHLORIDE\SERDEXMETHYLPHENIDATE CHLORIDE
  4. DEXMETHYLPHENIDATE HYDROCHLORIDE [Suspect]
     Active Substance: DEXMETHYLPHENIDATE HYDROCHLORIDE
     Dates: start: 202101
  5. JORNAY PM EXTENDED-RELEASE [Suspect]
     Active Substance: METHYLPHENIDATE HYDROCHLORIDE

REACTIONS (1)
  - Drug ineffective [Unknown]
